FAERS Safety Report 5721255-7 (Version None)
Quarter: 2008Q2

REPORT INFORMATION
  Report Type: 
  Country: None (occurrence: None)
  Receive Date: 20080429
  Receipt Date: 20080417
  Transmission Date: 20081010
  Serious: Yes (Other)
  Sender: FDA-Public Use
  Company Number: US-JNJFOC-20080405146

PATIENT
  Sex: Male
  Weight: 111.13 kg

DRUGS (29)
  1. DURAGESIC-100 [Suspect]
     Indication: DRUG USE FOR UNKNOWN INDICATION
     Route: 065
  2. ACTIQ [Suspect]
     Route: 002
  3. ACTIQ [Suspect]
     Route: 002
  4. ACTIQ [Suspect]
     Route: 002
  5. ACTIQ [Suspect]
     Indication: PAIN IN EXTREMITY
     Dosage: 4-6 LOZENGES PER DAY PRN
     Route: 002
  6. ACTIQ [Suspect]
     Indication: BACK PAIN
     Route: 002
  7. LORTAB [Suspect]
     Indication: PAIN IN EXTREMITY
     Route: 065
  8. LORTAB [Suspect]
     Indication: BACK PAIN
     Route: 065
  9. OXYCONTIN [Suspect]
     Route: 065
  10. OXYCONTIN [Suspect]
     Route: 065
  11. OXYCONTIN [Suspect]
     Route: 065
  12. OXYCONTIN [Suspect]
     Route: 065
  13. OXYCONTIN [Suspect]
     Route: 065
  14. OXYCONTIN [Suspect]
     Route: 065
  15. OXYCONTIN [Suspect]
     Indication: PAIN IN EXTREMITY
     Route: 065
  16. OXYCONTIN [Suspect]
     Indication: BACK PAIN
     Route: 065
  17. NORCO [Suspect]
     Route: 065
  18. NORCO [Suspect]
     Indication: DRUG USE FOR UNKNOWN INDICATION
     Route: 065
  19. COPAXONE [Concomitant]
     Route: 065
  20. TOPAMAX [Concomitant]
     Route: 065
  21. TOPAMAX [Concomitant]
     Route: 065
  22. VALIUM [Concomitant]
     Route: 065
  23. VALIUM [Concomitant]
     Route: 065
  24. AMBIEN [Concomitant]
     Route: 065
  25. NEURONTIN [Concomitant]
     Route: 065
  26. NEURONTIN [Concomitant]
     Route: 065
  27. NEURONTIN [Concomitant]
     Route: 065
  28. NEURONTIN [Concomitant]
     Route: 065
  29. MARIJUANA [Concomitant]
     Route: 065

REACTIONS (7)
  - CONSTIPATION [None]
  - DENTAL CARIES [None]
  - DEPRESSION [None]
  - DRUG DEPENDENCE [None]
  - SUICIDAL IDEATION [None]
  - TOOTH LOSS [None]
  - VISION BLURRED [None]
